FAERS Safety Report 9237975 (Version 1)
Quarter: 2013Q2

REPORT INFORMATION
  Report Type: Spontaneous
  Country: NL (occurrence: NL)
  Receive Date: 20130418
  Receipt Date: 20130418
  Transmission Date: 20140414
  Serious: Yes (Hospitalization)
  Sender: FDA-Public Use
  Company Number: NL-JNJFOC-20130407155

PATIENT
  Age: 63 Year
  Sex: Male
  Weight: 89 kg

DRUGS (9)
  1. XARELTO [Suspect]
     Indication: CEREBROVASCULAR ACCIDENT PROPHYLAXIS
     Route: 048
     Dates: start: 20130220
  2. XARELTO [Suspect]
     Indication: ATRIAL FIBRILLATION
     Route: 048
     Dates: start: 20130220
  3. VIAGRA [Concomitant]
     Route: 065
  4. TAMBOCOR [Concomitant]
     Route: 048
     Dates: start: 19990101
  5. SILDENAFIL [Concomitant]
     Route: 065
  6. FLECAINIDE [Concomitant]
     Route: 065
  7. FONDAPARINUX [Concomitant]
     Route: 065
  8. VERAPAMIL HYDROCHLORIDE [Concomitant]
     Route: 048
     Dates: start: 20110101
  9. CITALOPRAM [Concomitant]
     Route: 065
     Dates: start: 20100101

REACTIONS (2)
  - Headache [Not Recovered/Not Resolved]
  - Arrhythmia [Not Recovered/Not Resolved]
